FAERS Safety Report 5483750-8 (Version None)
Quarter: 2007Q4

REPORT INFORMATION
  Report Type: 
  Country: None (occurrence: None)
  Receive Date: 20071010
  Receipt Date: 20070919
  Transmission Date: 20080405
  Serious: No
  Sender: FDA-Public Use
  Company Number: 20070192

PATIENT
  Age: 70 Year
  Sex: Female
  Weight: 62.5964 kg

DRUGS (2)
  1. HYDROXYZINE HCL [Suspect]
     Indication: MIGRAINE
     Dosage: 100 MG INTRAMUSCULAR
     Route: 030
     Dates: start: 20070606
  2. HYDROXYZINE HCL [Suspect]
     Indication: NAUSEA
     Dosage: 100 MG INTRAMUSCULAR
     Route: 030
     Dates: start: 20070606

REACTIONS (3)
  - INJECTION SITE CELLULITIS [None]
  - INJECTION SITE DISCHARGE [None]
  - INJECTION SITE HAEMORRHAGE [None]
